FAERS Safety Report 18631232 (Version 1)
Quarter: 2020Q4

REPORT INFORMATION
  Report Type: Spontaneous
  Country: JP (occurrence: JP)
  Receive Date: 20201217
  Receipt Date: 20201217
  Transmission Date: 20210114
  Serious: Yes (Death, Hospitalization)
  Sender: FDA-Public Use
  Company Number: JP-009507513-2012JPN001199J

PATIENT
  Age: 69 Year
  Sex: Male
  Weight: 65 kg

DRUGS (16)
  1. KEYTRUDA [Suspect]
     Active Substance: PEMBROLIZUMAB
     Dosage: 200 MILLIGRAM/DOSE
     Route: 041
     Dates: start: 20200916, end: 20201007
  2. PREDONINE [Concomitant]
     Active Substance: PREDNISOLONE
     Indication: INTERSTITIAL LUNG DISEASE
     Dosage: 80 MILLIGRAM
     Route: 048
     Dates: start: 20200302, end: 2020
  3. KEYTRUDA [Suspect]
     Active Substance: PEMBROLIZUMAB
     Indication: SQUAMOUS CELL CARCINOMA OF LUNG
     Dosage: 200 MILLIGRAM/DOSE
     Route: 041
     Dates: start: 20191016, end: 20200207
  4. PREDONINE [Concomitant]
     Active Substance: PREDNISOLONE
     Dosage: 5 MILLIGRAM
     Route: 048
     Dates: start: 20200916, end: 20201019
  5. FURSULTIAMINE [Concomitant]
     Active Substance: FURSULTIAMINE
     Dosage: UNK
     Route: 048
     Dates: start: 20200909, end: 20201019
  6. PREDONINE [Concomitant]
     Active Substance: PREDNISOLONE
     Dosage: 80 MILLIGRAM
     Route: 048
     Dates: start: 20200415, end: 2020
  7. PREDONINE [Concomitant]
     Active Substance: PREDNISOLONE
     Dosage: REDUCED THE AMOUNT
     Route: 048
     Dates: start: 2020, end: 2020
  8. CELECOXIB. [Concomitant]
     Active Substance: CELECOXIB
     Dosage: UNK
     Route: 048
     Dates: start: 20190725, end: 20201019
  9. TRAZENTA [Concomitant]
     Active Substance: LINAGLIPTIN
     Dosage: UNK
     Route: 048
     Dates: start: 20200501, end: 20201019
  10. BAKTAR [Concomitant]
     Active Substance: SULFAMETHOXAZOLE\TRIMETHOPRIM
     Dosage: UNK
     Route: 048
     Dates: start: 20200309, end: 20201019
  11. BISOPROLOL FUMARATE. [Concomitant]
     Active Substance: BISOPROLOL FUMARATE
     Dosage: UNK
     Route: 048
     Dates: start: 20200608, end: 20201019
  12. CYMBALTA [Concomitant]
     Active Substance: DULOXETINE HYDROCHLORIDE
     Dosage: UNK
     Route: 048
     Dates: start: 20200110, end: 20201019
  13. CALONAL [Concomitant]
     Active Substance: ACETAMINOPHEN
     Dosage: UNK
     Route: 048
     Dates: start: 20201009, end: 20201019
  14. PREDONINE [Concomitant]
     Active Substance: PREDNISOLONE
     Dosage: REDUCED THE AMOUNT
     Route: 048
     Dates: start: 2020, end: 2020
  15. TAKECAB [Concomitant]
     Active Substance: VONOPRAZAN FUMARATE
     Dosage: UNK
     Route: 048
     Dates: start: 20191127, end: 20201019
  16. LYRICA [Concomitant]
     Active Substance: PREGABALIN
     Dosage: UNK
     Route: 048
     Dates: start: 20191202, end: 20201019

REACTIONS (1)
  - Interstitial lung disease [Fatal]

NARRATIVE: CASE EVENT DATE: 20201019
